FAERS Safety Report 25261086 (Version 3)
Quarter: 2025Q2

REPORT INFORMATION
  Report Type: Report from Study
  Country: US (occurrence: US)
  Receive Date: 20250501
  Receipt Date: 20250603
  Transmission Date: 20250717
  Serious: No
  Sender: SUNOVION
  Company Number: US-SMPA-2025SPA004773AA

PATIENT

DRUGS (2)
  1. ORGOVYX [Suspect]
     Active Substance: RELUGOLIX
     Indication: Prostate cancer
     Route: 048
     Dates: start: 20241218, end: 20241218
  2. ORGOVYX [Suspect]
     Active Substance: RELUGOLIX
     Dosage: 120 MG, QD
     Route: 048
     Dates: start: 20241219

REACTIONS (7)
  - Dysuria [Unknown]
  - Urinary retention [Unknown]
  - Prostatomegaly [Unknown]
  - Prostatic specific antigen increased [Unknown]
  - Penile pain [Unknown]
  - Urinary tract infection [Recovered/Resolved]
  - Constipation [Unknown]
